FAERS Safety Report 5618293-1 (Version None)
Quarter: 2008Q1

REPORT INFORMATION
  Report Type: 
  Country: None (occurrence: None)
  Receive Date: 20080207
  Receipt Date: 20080131
  Transmission Date: 20080703
  Serious: Yes (Other)
  Sender: FDA-Public Use
  Company Number: NO-ASTRAZENECA-2008SE00620

PATIENT
  Sex: Male

DRUGS (6)
  1. ZOLADEX [Suspect]
     Route: 058
     Dates: start: 20061220
  2. HIPREX [Concomitant]
  3. TRIATEC [Concomitant]
  4. XALATAN [Concomitant]
     Route: 047
  5. BETOPTIC [Concomitant]
     Route: 047
  6. OXIS [Concomitant]

REACTIONS (2)
  - EPILEPSY [None]
  - HOT FLUSH [None]
